FAERS Safety Report 23281833 (Version 1)
Quarter: 2023Q4

REPORT INFORMATION
  Report Type: Spontaneous
  Country: FR (occurrence: FR)
  Receive Date: 20231211
  Receipt Date: 20231211
  Transmission Date: 20240109
  Serious: Yes (Hospitalization)
  Sender: FDA-Public Use
  Company Number: None

PATIENT
  Age: 91 Year
  Sex: Male
  Weight: 124 kg

DRUGS (10)
  1. BISOPROLOL [Suspect]
     Active Substance: BISOPROLOL\BISOPROLOL FUMARATE
     Indication: Cardiac failure chronic
     Dosage: 5 MG, QD
     Route: 048
  2. ELIQUIS [Suspect]
     Active Substance: APIXABAN
     Indication: Wrong patient received product
     Dosage: 2 DF, QD
     Route: 048
     Dates: end: 20231121
  3. LAMALINE (ACETAMINOPHEN\CAFFEINE\OPIUM) [Suspect]
     Active Substance: ACETAMINOPHEN\CAFFEINE\OPIUM
     Indication: Wrong patient received product
     Dosage: 2 DF
     Route: 048
     Dates: start: 20230621, end: 20230621
  4. LEVOTHYROXINE [Suspect]
     Active Substance: LEVOTHYROXINE
     Indication: Wrong patient received product
     Dosage: 1 DF, QD
     Route: 048
     Dates: start: 20230621, end: 20230621
  5. PERINDOPRIL [Suspect]
     Active Substance: PERINDOPRIL
     Indication: Wrong patient received product
     Dosage: UNK UNK, QD
     Route: 048
     Dates: start: 20230621, end: 20230621
  6. PREDNISONE [Suspect]
     Active Substance: PREDNISONE
     Indication: Wrong patient received product
     Dosage: 7 MG, QD
     Route: 048
     Dates: start: 20230621, end: 20230621
  7. OXAZEPAM [Suspect]
     Active Substance: OXAZEPAM
     Indication: Wrong patient received product
     Dosage: 1.5 DF, QD
     Route: 048
     Dates: start: 20230621, end: 20230621
  8. ESCITALOPRAM OXALATE [Suspect]
     Active Substance: ESCITALOPRAM OXALATE
     Indication: Wrong patient received product
     Dosage: 1 DF
     Route: 048
     Dates: start: 20230621, end: 20230621
  9. ENTRESTO [Concomitant]
     Active Substance: SACUBITRIL\VALSARTAN
     Indication: Cardiac failure
     Dosage: 2 DF, QD
     Route: 048
  10. DAPAGLIFLOZIN [Concomitant]
     Active Substance: DAPAGLIFLOZIN
     Indication: Diabetes mellitus
     Dosage: 1 DF, QD
     Route: 048

REACTIONS (3)
  - Hypotension [Recovered/Resolved]
  - Wrong patient [Recovered/Resolved]
  - Somnolence [Recovered/Resolved]

NARRATIVE: CASE EVENT DATE: 20230621
